FAERS Safety Report 17911140 (Version 1)
Quarter: 2020Q2

REPORT INFORMATION
  Report Type: Spontaneous
  Country: SE (occurrence: SE)
  Receive Date: 20200618
  Receipt Date: 20200618
  Transmission Date: 20200714
  Serious: Yes (Life-Threatening)
  Sender: FDA-Public Use
  Company Number: SE-BAYER-2020-115592

PATIENT
  Age: 17 Year
  Sex: Female

DRUGS (5)
  1. BAMYL KOFFEIN [Suspect]
     Active Substance: ASPIRIN\CAFFEINE
     Indication: PYREXIA
     Dosage: DOSERING ^EN LITEN KLUNK^
     Route: 048
     Dates: start: 20200427, end: 20200427
  2. CERAZETTE [DESOGESTREL] [Concomitant]
     Active Substance: DESOGESTREL
  3. ALVEDON [Suspect]
     Active Substance: ACETAMINOPHEN
     Indication: PYREXIA
     Route: 048
     Dates: start: 20200427, end: 20200501
  4. CLARITINE 10 MG [Suspect]
     Active Substance: LORATADINE
     Indication: HYPERSENSITIVITY
     Dosage: 10 MG
     Dates: start: 20200428, end: 20200428
  5. IBUPROFEN BAYER [Suspect]
     Active Substance: IBUPROFEN
     Indication: PYREXIA
     Route: 048
     Dates: start: 20200427, end: 20200430

REACTIONS (1)
  - Toxic epidermal necrolysis [Not Recovered/Not Resolved]
